FAERS Safety Report 8814986 (Version 1)
Quarter: 2012Q4

REPORT INFORMATION
  Report Type: 
  Country: PL (occurrence: PL)
  Receive Date: 20120928
  Receipt Date: 20120928
  Transmission Date: 20130627
  Serious: Yes (Other)
  Sender: FDA-Public Use
  Company Number: PHHY2012PL082373

PATIENT

DRUGS (2)
  1. CERTICAN [Suspect]
     Dosage: 0.75 mg, BID
  2. MYFORTIC [Suspect]
     Dosage: 1 g, BID

REACTIONS (7)
  - Hidradenitis [Unknown]
  - Granuloma [Unknown]
  - Nodule [Unknown]
  - Ulcer [Unknown]
  - Blood creatinine increased [Unknown]
  - Proteus infection [Unknown]
  - Viraemia [Unknown]
